FAERS Safety Report 17525083 (Version 1)
Quarter: 2020Q1

REPORT INFORMATION
  Report Type: Spontaneous
  Country: DE (occurrence: DE)
  Receive Date: 20200310
  Receipt Date: 20200310
  Transmission Date: 20200409
  Serious: Yes (Other)
  Sender: FDA-Public Use
  Company Number: DE-BAYER-2020-035208

PATIENT
  Age: 37 Year
  Sex: Female
  Weight: 60 kg

DRUGS (1)
  1. JAYDESS [Suspect]
     Active Substance: LEVONORGESTREL
     Dosage: 14 ?G PER DAY,CONTINUOUSLY
     Route: 015
     Dates: start: 20180608, end: 20191217

REACTIONS (5)
  - Alopecia [Not Recovered/Not Resolved]
  - Depressed mood [None]
  - Autoimmune thyroiditis [Not Recovered/Not Resolved]
  - Fatigue [None]
  - Skin disorder [None]

NARRATIVE: CASE EVENT DATE: 20200105
